FAERS Safety Report 14146760 (Version 1)
Quarter: 2017Q4

REPORT INFORMATION
  Report Type: Spontaneous
  Country: CY (occurrence: CY)
  Receive Date: 20171101
  Receipt Date: 20171101
  Transmission Date: 20180321
  Serious: Yes (Hospitalization)
  Sender: FDA-Public Use
  Company Number: CY-BEH-2017083608

PATIENT
  Age: 24 Year
  Sex: Female
  Weight: 70 kg

DRUGS (2)
  1. BERINERT [Suspect]
     Active Substance: HUMAN C1-ESTERASE INHIBITOR
     Indication: ABDOMINAL PAIN
  2. BERINERT [Suspect]
     Active Substance: HUMAN C1-ESTERASE INHIBITOR
     Indication: IDIOPATHIC ANGIOEDEMA
     Dosage: 1500 IU, UNK
     Route: 042
     Dates: start: 20170907

REACTIONS (2)
  - Drug ineffective for unapproved indication [Unknown]
  - Idiopathic angioedema [Unknown]

NARRATIVE: CASE EVENT DATE: 20170907
